FAERS Safety Report 5571752-2 (Version None)
Quarter: 2007Q4

REPORT INFORMATION
  Report Type: 
  Country: None (occurrence: None)
  Receive Date: 20071221
  Receipt Date: 20071220
  Transmission Date: 20080405
  Serious: Yes (Life-Threatening, Hospitalization, Disabling, Other)
  Sender: FDA-Public Use
  Company Number: B0485044A

PATIENT
  Age: 78 Year
  Sex: Female
  Weight: 98.4 kg

DRUGS (10)
  1. AVANDAMET [Suspect]
     Route: 048
     Dates: start: 20060602
  2. ATENOLOL [Concomitant]
     Dosage: 50MG PER DAY
  3. FUROSEMIDE [Concomitant]
     Dosage: 20MG PER DAY
  4. LISINOPRIL [Concomitant]
     Dosage: 2.5MG PER DAY
  5. SIMVASTATIN [Concomitant]
     Dosage: 40MG PER DAY
  6. ASPIRIN [Concomitant]
     Dosage: 75MG PER DAY
  7. LEVOTHYROXINE SODIUM [Concomitant]
     Dosage: 150MCG PER DAY
  8. TRAMADOL HCL [Concomitant]
  9. CO-CODAMOL [Concomitant]
  10. AMITRIPTLINE HCL [Concomitant]
     Dosage: 30MG PER DAY

REACTIONS (1)
  - CEREBROVASCULAR ACCIDENT [None]
